FAERS Safety Report 8581560-6 (Version None)
Quarter: 2012Q3

REPORT INFORMATION
  Report Type: 
  Country: None (occurrence: None)
  Receive Date: 20120809
  Receipt Date: 20120807
  Transmission Date: 20120928
  Serious: Yes (Hospitalization, Other)
  Sender: FDA-Public Use
  Company Number: US-AMGEN-USASP2011010746

PATIENT
  Age: 54 Year
  Sex: Male
  Weight: 69.841 kg

DRUGS (1)
  1. ENBREL [Suspect]
     Indication: RHEUMATOID ARTHRITIS
     Dosage: 50 MG, QWK
     Dates: start: 20020101, end: 20110201

REACTIONS (2)
  - AUTOIMMUNE THROMBOCYTOPENIA [None]
  - HEPATITIS C [None]
